FAERS Safety Report 8096689-9 (Version None)
Quarter: 2012Q1

REPORT INFORMATION
  Report Type: 
  Country: None (occurrence: None)
  Receive Date: 20120129
  Receipt Date: 20111115
  Transmission Date: 20120608
  Serious: No
  Sender: FDA-Public Use
  Company Number: US-ABBOTT-11P-163-0874675-00

PATIENT
  Sex: Female
  Weight: 71.278 kg

DRUGS (7)
  1. HYDROCORTISONE [Concomitant]
     Indication: COLITIS ULCERATIVE
     Dates: start: 20110601
  2. HUMIRA [Suspect]
     Dosage: 40 MG LOADING DOSE DAY 2
     Dates: start: 20110101, end: 20110101
  3. HUMIRA [Suspect]
     Dosage: DAY 5
     Dates: start: 20110101, end: 20110101
  4. HUMIRA [Suspect]
     Dosage: 80 MG LOADING DOSE DAY 1
     Dates: start: 20110101, end: 20110101
  5. HUMIRA [Suspect]
     Indication: COLITIS ULCERATIVE
     Dates: start: 20111023
  6. HUMIRA [Suspect]
     Dosage: 2 INJECTIONS 15 DAYS LATER
     Dates: start: 20110101, end: 20110101
  7. UNKNOWN CONTRACEPTIVE MEDICATION [Concomitant]
     Indication: CONTRACEPTION

REACTIONS (5)
  - OFF LABEL USE [None]
  - FATIGUE [None]
  - GASTRIC DILATATION [None]
  - DRUG INEFFECTIVE FOR UNAPPROVED INDICATION [None]
  - HAEMATOCHEZIA [None]
